FAERS Safety Report 8461603-0 (Version None)
Quarter: 2012Q2

REPORT INFORMATION
  Report Type: 
  Country: None (occurrence: None)
  Receive Date: 20120625
  Receipt Date: 20120618
  Transmission Date: 20120825
  Serious: Yes (Hospitalization)
  Sender: FDA-Public Use
  Company Number: PHHY2012AU047213

PATIENT
  Sex: Male

DRUGS (2)
  1. QUETIAPINE [Concomitant]
     Dosage: 200 MG AT PM
  2. CLOZARIL [Suspect]
     Indication: SCHIZOPHRENIA
     Dosage: 550 MG
     Route: 048
     Dates: start: 19940716

REACTIONS (3)
  - SCHIZOPHRENIA [None]
  - MENTAL IMPAIRMENT [None]
  - AGITATION [None]
